FAERS Safety Report 17195861 (Version 2)
Quarter: 2019Q4

REPORT INFORMATION
  Report Type: Spontaneous
  Country: BR (occurrence: BR)
  Receive Date: 20191224
  Receipt Date: 20191226
  Transmission Date: 20200122
  Serious: No
  Sender: FDA-Public Use
  Company Number: BR-TORRENT-00005197

PATIENT
  Sex: Female

DRUGS (3)
  1. VENLIFT OD [Suspect]
     Active Substance: VENLAFAXINE HYDROCHLORIDE
     Indication: ANXIETY DISORDER
     Dosage: ONLY 4 DAYS
     Route: 048
  2. EFEXOR XR 150 [Suspect]
     Active Substance: VENLAFAXINE HYDROCHLORIDE
     Indication: ANXIETY DISORDER
     Dosage: UNKNOWN
  3. EFEXOR XR [Suspect]
     Active Substance: VENLAFAXINE HYDROCHLORIDE
     Indication: ANXIETY DISORDER
     Dosage: XR 75 MG
     Route: 048

REACTIONS (1)
  - Condition aggravated [Recovered/Resolved]
